FAERS Safety Report 16764642 (Version 2)
Quarter: 2019Q3

REPORT INFORMATION
  Report Type: Report from Study
  Country: KR (occurrence: KR)
  Receive Date: 20190902
  Receipt Date: 20190925
  Transmission Date: 20191005
  Serious: Yes (Hospitalization, Other)
  Sender: FDA-Public Use
  Company Number: KR-CELLTRION INC.-2019KR024220

PATIENT

DRUGS (4)
  1. OCODONE [Concomitant]
     Active Substance: OXYCODONE HYDROCHLORIDE
     Indication: BACK PAIN
     Dosage: 10 MG, QID
     Route: 048
     Dates: start: 20190707
  2. TRUXIMA [Suspect]
     Active Substance: RITUXIMAB-ABBS
     Dosage: 555 MG, QD
     Route: 042
     Dates: start: 20190717, end: 20190819
  3. TRUXIMA [Suspect]
     Active Substance: RITUXIMAB-ABBS
     Indication: DIFFUSE LARGE B-CELL LYMPHOMA
     Dosage: 555 MG, QD
     Route: 042
     Dates: start: 20190717, end: 20190819
  4. APETROL ES [Concomitant]
     Indication: PROPHYLAXIS
     Dosage: 650 MG, QD
     Route: 048
     Dates: start: 20190729

REACTIONS (3)
  - Loss of personal independence in daily activities [Unknown]
  - Decreased appetite [Unknown]
  - Back pain [Not Recovered/Not Resolved]

NARRATIVE: CASE EVENT DATE: 20190809
